FAERS Safety Report 20730925 (Version 2)
Quarter: 2022Q2

REPORT INFORMATION
  Report Type: Spontaneous
  Country: US (occurrence: US)
  Receive Date: 20220420
  Receipt Date: 20220509
  Transmission Date: 20220721
  Serious: No
  Sender: FDA-Public Use
  Company Number: US-PFIZER INC-202200065961

PATIENT
  Age: 49 Year
  Sex: Female

DRUGS (4)
  1. IBRANCE [Suspect]
     Active Substance: PALBOCICLIB
     Dosage: 125 MG, CYCLIC (DAILY WITH BREAKFAST FOR 21 DAYS FOLLOWED BY 7 DAYS OFF)
     Route: 048
     Dates: start: 20211203
  2. FISH OIL [Concomitant]
     Active Substance: FISH OIL
     Dosage: UNK
  3. LORATADINE [Concomitant]
     Active Substance: LORATADINE
     Dosage: UNK
  4. VITAMIN D3 [Concomitant]
     Active Substance: CHOLECALCIFEROL
     Dosage: UNK

REACTIONS (4)
  - Nausea [Unknown]
  - Fatigue [Unknown]
  - White blood cell count decreased [Unknown]
  - Nasopharyngitis [Unknown]
